FAERS Safety Report 11599831 (Version 3)
Quarter: 2015Q4

REPORT INFORMATION
  Report Type: Spontaneous
  Country: US (occurrence: US)
  Receive Date: 20151006
  Receipt Date: 20151116
  Transmission Date: 20160304
  Serious: Yes (Other)
  Sender: FDA-Public Use
  Company Number: US-GILEAD-2015-0174863

PATIENT
  Age: 57 Year
  Sex: Male

DRUGS (13)
  1. PRAZOSIN [Concomitant]
     Active Substance: PRAZOSIN
     Dosage: 1 MG, QD
     Route: 048
  2. LISINOPRIL. [Concomitant]
     Active Substance: LISINOPRIL
     Dosage: 40 MG, QD
  3. MELOXICAM. [Concomitant]
     Active Substance: MELOXICAM
     Dosage: 15 MG, PRN
  4. TERBINAFINE. [Concomitant]
     Active Substance: TERBINAFINE
     Dosage: UNK, PRN
     Route: 061
  5. SOVALDI [Suspect]
     Active Substance: SOFOSBUVIR
     Indication: HEPATITIS C
     Dosage: UNK
     Route: 065
  6. GABAPENTIN. [Concomitant]
     Active Substance: GABAPENTIN
     Dosage: 300 MG, TID
  7. METFORMIN [Concomitant]
     Active Substance: METFORMIN HYDROCHLORIDE
     Dosage: 500 MG, BID
  8. SOVALDI [Suspect]
     Active Substance: SOFOSBUVIR
     Indication: HEPATITIS B
  9. AMLODIPINE [Concomitant]
     Active Substance: AMLODIPINE BESYLATE
     Dosage: 10 MG, UNK
  10. TRAMADOL. [Concomitant]
     Active Substance: TRAMADOL
     Dosage: 50 MG, PRN
     Route: 048
  11. CITALOPRAM [Concomitant]
     Active Substance: CITALOPRAM HYDROBROMIDE
     Dosage: 40 MG, QD
  12. SIMEPREVIR [Concomitant]
     Active Substance: SIMEPREVIR
     Indication: HEPATITIS C
  13. SILDENAFIL. [Concomitant]
     Active Substance: SILDENAFIL
     Dosage: 50 MG, PRN
     Route: 048

REACTIONS (1)
  - Hepatitis B [Recovered/Resolved]
